FAERS Safety Report 9370691 (Version 2)
Quarter: 2013Q3

REPORT INFORMATION
  Report Type: Spontaneous
  Country: US (occurrence: US)
  Receive Date: 20130626
  Receipt Date: 20130709
  Transmission Date: 20140515
  Serious: Yes (Other)
  Sender: FDA-Public Use
  Company Number: US-MERCK-1306USA007599

PATIENT
  Age: 74 Year
  Sex: Female
  Weight: 68.27 kg

DRUGS (10)
  1. ZETIA [Suspect]
     Indication: BLOOD CHOLESTEROL INCREASED
     Dosage: UNK
  2. FOSAMAX [Suspect]
     Dosage: UNK
     Route: 048
  3. DETROL LA [Suspect]
     Indication: HYPERTONIC BLADDER
     Dosage: 4 MG, QD
     Route: 048
     Dates: start: 201303, end: 201304
  4. DETROL LA [Suspect]
     Dosage: 2 MG, UNK
     Dates: start: 200306
  5. OXYBUTYNIN [Suspect]
  6. TOVIAZ [Suspect]
     Dosage: UNK
  7. VESICARE [Suspect]
     Dosage: UNK
  8. PRAVASTATIN SODIUM [Suspect]
     Indication: BLOOD CHOLESTEROL
     Dosage: UNK
     Dates: start: 2013, end: 2013
  9. IBANDRONATE SODIUM [Suspect]
  10. ACTONEL [Concomitant]
     Indication: BONE DISORDER
     Dosage: UNK

REACTIONS (25)
  - Oesophageal pain [Unknown]
  - Musculoskeletal chest pain [Unknown]
  - Chest pain [Recovered/Resolved]
  - Abdominal pain upper [Unknown]
  - Fatigue [Recovered/Resolved]
  - Gastrooesophageal reflux disease [Unknown]
  - Oropharyngeal pain [Unknown]
  - Throat irritation [Unknown]
  - Oropharyngeal discomfort [Unknown]
  - Chest discomfort [Unknown]
  - Musculoskeletal chest pain [Recovered/Resolved]
  - Flatulence [Unknown]
  - Chest discomfort [Unknown]
  - Abdominal pain upper [Unknown]
  - Constipation [Unknown]
  - Dry mouth [Recovered/Resolved]
  - Flatulence [Recovered/Resolved]
  - Flushing [Recovered/Resolved]
  - Pain in extremity [Recovered/Resolved]
  - Musculoskeletal discomfort [Recovered/Resolved]
  - Gait disturbance [Unknown]
  - Wrong technique in drug usage process [Unknown]
  - Joint swelling [Unknown]
  - Local swelling [Unknown]
  - Chest pain [Recovered/Resolved]
